FAERS Safety Report 5068196-9 (Version None)
Quarter: 2006Q3

REPORT INFORMATION
  Report Type: 
  Country: None (occurrence: None)
  Receive Date: 20060802
  Receipt Date: 20050415
  Transmission Date: 20061208
  Serious: No
  Sender: FDA-Public Use
  Company Number: US-BRISTOL-MYERS SQUIBB COMPANY-12934881

PATIENT
  Age: 88 Year
  Sex: Female
  Weight: 50 kg

DRUGS (11)
  1. COUMADIN [Suspect]
     Indication: ATRIAL FIBRILLATION
     Dosage: 2 MG AND 3 MG ALTERNATING DOSES, STOPPED IN JAN-2005 RESTARTED 08-APR-2005
     Route: 048
     Dates: start: 20020101
  2. COUMADIN [Suspect]
     Indication: PROPHYLAXIS
     Dosage: 2 MG AND 3 MG ALTERNATING DOSES, STOPPED IN JAN-2005 RESTARTED 08-APR-2005
     Route: 048
     Dates: start: 20020101
  3. ASPIRIN [Concomitant]
  4. CALCIUM GLUCONATE [Concomitant]
  5. DIGOXIN [Concomitant]
  6. EXELON [Concomitant]
  7. FOSAMAX [Concomitant]
  8. LIPITOR [Concomitant]
  9. METFORMIN HYDROCHLORIDE [Concomitant]
  10. MULTI-VITAMIN [Concomitant]
  11. VITAMIN B-12 [Concomitant]

REACTIONS (5)
  - FALL [None]
  - INTERNATIONAL NORMALISED RATIO DECREASED [None]
  - INTERNATIONAL NORMALISED RATIO INCREASED [None]
  - PRURITUS [None]
  - RASH ERYTHEMATOUS [None]
